FAERS Safety Report 8952570 (Version 2)
Quarter: 2013Q1

REPORT INFORMATION
  Report Type: Report from Study
  Country: FR (occurrence: FR)
  Receive Date: 20121205
  Receipt Date: 20130304
  Transmission Date: 20140127
  Serious: Yes (Hospitalization, Other)
  Sender: FDA-Public Use
  Company Number: FR-BRISTOL-MYERS SQUIBB COMPANY-17057993

PATIENT
  Age: 43 Year
  Sex: Female

DRUGS (4)
  1. IPILIMUMAB [Suspect]
     Indication: MALIGNANT MELANOMA
     Dosage: NO OF COURSE 3
     Route: 042
     Dates: start: 20120516, end: 20120626
  2. HYDROCORTISONE [Concomitant]
     Dates: start: 20120803
  3. LEVOTHYROX [Concomitant]
     Dates: start: 20120907
  4. VEMURAFENIB [Concomitant]
     Dates: start: 20120913

REACTIONS (3)
  - Diarrhoea [Not Recovered/Not Resolved]
  - Dehydration [Unknown]
  - Renal failure [Unknown]
